FAERS Safety Report 19758498 (Version 1)
Quarter: 2021Q3

REPORT INFORMATION
  Report Type: Spontaneous
  Country: CN (occurrence: CN)
  Receive Date: 20210827
  Receipt Date: 20210827
  Transmission Date: 20211014
  Serious: Yes (Other)
  Sender: FDA-Public Use
  Company Number: CN-PURDUE-USA-2021-0282700

PATIENT
  Age: 69 Year
  Sex: Female
  Weight: 45 kg

DRUGS (2)
  1. MS CONTIN [Suspect]
     Active Substance: MORPHINE SULFATE
     Indication: ANALGESIC THERAPY
     Dosage: 90 MG, BID
     Route: 048
     Dates: start: 20210812, end: 20210815
  2. MORPHINE HYDROCHLORIDE [Suspect]
     Active Substance: MORPHINE HYDROCHLORIDE
     Indication: ANALGESIC THERAPY
     Dosage: 10 MG, BID
     Route: 058
     Dates: start: 20210810, end: 20210818

REACTIONS (3)
  - Vomiting [Not Recovered/Not Resolved]
  - Abdominal distension [Not Recovered/Not Resolved]
  - Nausea [Not Recovered/Not Resolved]

NARRATIVE: CASE EVENT DATE: 20210812
